FAERS Safety Report 11961829 (Version 2)
Quarter: 2016Q1

REPORT INFORMATION
  Report Type: Report from Study
  Country: US (occurrence: US)
  Receive Date: 20160126
  Receipt Date: 20160202
  Transmission Date: 20160526
  Serious: No
  Sender: FDA-Public Use
  Company Number: US-ABBVIE-15K-163-1354880-00

PATIENT
  Age: 84 Year
  Sex: Male

DRUGS (1)
  1. HUMIRA [Suspect]
     Active Substance: ADALIMUMAB
     Indication: PSORIASIS
     Route: 058
     Dates: start: 20150205, end: 20150205

REACTIONS (4)
  - Insomnia [Unknown]
  - Nasopharyngitis [Unknown]
  - Diarrhoea [Unknown]
  - Infection [Unknown]

NARRATIVE: CASE EVENT DATE: 20150205
